FAERS Safety Report 4385644-8 (Version None)
Quarter: 2004Q2

REPORT INFORMATION
  Report Type: 
  Country: None (occurrence: None)
  Receive Date: 20040623
  Receipt Date: 20040604
  Transmission Date: 20050107
  Serious: Yes (Life-Threatening, Hospitalization, Other)
  Sender: FDA-Public Use
  Company Number: FR_040604234

PATIENT
  Age: 66 Year
  Sex: Female
  Weight: 78 kg

DRUGS (5)
  1. GEMZAR [Suspect]
     Indication: BREAST CANCER
     Dosage: 1700 MG/M3 OTHER
     Route: 050
     Dates: start: 20031101, end: 20040321
  2. ALDACTONE [Concomitant]
  3. PRAVASTATIN SODIUM [Concomitant]
  4. SOLU-MEDROL [Concomitant]
  5. ANTI-HISTAMINE TAB [Concomitant]

REACTIONS (12)
  - BLOOD PRESSURE DECREASED [None]
  - BREAST MASS [None]
  - COUGH [None]
  - CREATININE RENAL CLEARANCE DECREASED [None]
  - DYSPNOEA EXERTIONAL [None]
  - LIVEDO RETICULARIS [None]
  - OEDEMA PERIPHERAL [None]
  - PERICARDIAL EFFUSION [None]
  - PLEURAL EFFUSION [None]
  - PNEUMONITIS [None]
  - PULMONARY EMBOLISM [None]
  - SKIN NODULE [None]
